FAERS Safety Report 9171534 (Version 1)
Quarter: 2013Q1

REPORT INFORMATION
  Report Type: Spontaneous
  Country: CA (occurrence: CA)
  Receive Date: 20130319
  Receipt Date: 20130319
  Transmission Date: 20140127
  Serious: Yes (Hospitalization, Other)
  Sender: FDA-Public Use
  Company Number: CA-ASTRAZENECA-2013SE16657

PATIENT
  Age: 499 Month
  Sex: Male

DRUGS (5)
  1. SEROQUEL XR [Suspect]
     Route: 048
     Dates: start: 2009
  2. SEROQUEL XR [Suspect]
     Dosage: 600 MG DIE
     Route: 048
     Dates: start: 201002, end: 201202
  3. SEROQUEL XR [Suspect]
     Dosage: 800 MG DIE
     Route: 048
     Dates: start: 201209
  4. SEROQUEL XR [Suspect]
     Dosage: 350 MG IN AM, 450 MG IN PM
     Route: 048
  5. EPIVAL [Concomitant]
     Indication: BIPOLAR DISORDER
     Route: 048
     Dates: start: 2008

REACTIONS (3)
  - Suicidal behaviour [Recovered/Resolved]
  - Impaired work ability [Unknown]
  - Intentional drug misuse [Unknown]
